FAERS Safety Report 10155185 (Version 1)
Quarter: 2014Q2

REPORT INFORMATION
  Report Type: Spontaneous
  Country: US (occurrence: US)
  Receive Date: 20140506
  Receipt Date: 20140506
  Transmission Date: 20141212
  Serious: Yes (Hospitalization)
  Sender: FDA-Public Use
  Company Number: US-TEVA-479177USA

PATIENT
  Sex: Male
  Weight: 122.58 kg

DRUGS (11)
  1. NUVIGIL [Suspect]
     Indication: SLEEP APNOEA SYNDROME
     Dates: end: 20140428
  2. PROVIGIL [Suspect]
     Indication: SLEEP APNOEA SYNDROME
  3. METFORMIN [Concomitant]
     Indication: DIABETES MELLITUS
  4. WARFARIN [Concomitant]
     Indication: CARDIAC DISORDER
  5. LISINOPRIL [Concomitant]
     Indication: CARDIAC DISORDER
  6. RANITIDINE [Concomitant]
     Indication: GASTROOESOPHAGEAL REFLUX DISEASE
  7. POTASSIUM [Concomitant]
     Indication: BLOOD POTASSIUM DECREASED
  8. HYDROCODONE [Concomitant]
     Indication: PAIN
  9. LASIX [Concomitant]
     Indication: DIURETIC THERAPY
  10. METOPROLOL [Concomitant]
     Indication: HYPERTENSION
  11. METOPROLOL [Concomitant]
     Indication: CARDIAC DISORDER

REACTIONS (2)
  - Dyspnoea [Not Recovered/Not Resolved]
  - Dyspnoea [Unknown]
